FAERS Safety Report 5587634-6 (Version None)
Quarter: 2008Q1

REPORT INFORMATION
  Report Type: 
  Country: None (occurrence: None)
  Receive Date: 20080108
  Receipt Date: 20080102
  Transmission Date: 20080703
  Serious: Yes (Other)
  Sender: FDA-Public Use
  Company Number: S07-USA-05696-01

PATIENT
  Age: 57 Year
  Sex: Female

DRUGS (2)
  1. THYROID TAB [Suspect]
     Indication: HYPOTHYROIDISM
     Dosage: 90 MG QOD PO
     Route: 048
     Dates: start: 20020101
  2. THYROID TAB [Suspect]
     Indication: HYPOTHYROIDISM
     Dosage: 120 MG QOD PO
     Route: 048
     Dates: start: 20020101

REACTIONS (2)
  - BONE DENSITY DECREASED [None]
  - RESORPTION BONE INCREASED [None]
